FAERS Safety Report 4330135-3 (Version None)
Quarter: 2004Q2

REPORT INFORMATION
  Report Type: 
  Country: None (occurrence: None)
  Receive Date: 20040402
  Receipt Date: 20040322
  Transmission Date: 20050107
  Serious: Yes (Other)
  Sender: FDA-Public Use
  Company Number: 200411183FR

PATIENT
  Age: 31 Year
  Sex: Female

DRUGS (2)
  1. TAXOTERE [Suspect]
     Indication: BREAST CANCER
     Route: 042
     Dates: start: 20030819, end: 20030819
  2. FARMORUBICINE [Suspect]
     Indication: BREAST CANCER
     Route: 042
     Dates: start: 20030819, end: 20030819

REACTIONS (3)
  - CARDIOMYOPATHY [None]
  - EJECTION FRACTION DECREASED [None]
  - HYPOKINESIA [None]
